FAERS Safety Report 7631770-7 (Version None)
Quarter: 2011Q3

REPORT INFORMATION
  Report Type: 
  Country: None (occurrence: None)
  Receive Date: 20110725
  Receipt Date: 20110310
  Transmission Date: 20111222
  Serious: No
  Sender: FDA-Public Use
  Company Number: US-BRISTOL-MYERS SQUIBB COMPANY-15600299

PATIENT
  Age: 68 Year
  Sex: Female
  Weight: 95 kg

DRUGS (9)
  1. WARFARIN SODIUM [Suspect]
  2. LIDOCAINE [Suspect]
     Indication: PAIN
     Dosage: 1DF=1 PATCH FOR 4 DAYS
     Dates: start: 20110201
  3. ALBUTEROL SULFATE AUTOHALER [Concomitant]
     Indication: ASTHMA
  4. FLOVENT [Concomitant]
     Indication: ASTHMA
  5. KLONOPIN [Concomitant]
  6. COUMADIN [Suspect]
     Indication: THROMBOSIS
     Dates: start: 20101201
  7. PREDNISONE [Concomitant]
  8. CYMBALTA [Concomitant]
  9. LEVOXYL [Concomitant]
     Indication: THYROID DISORDER

REACTIONS (1)
  - CONTUSION [None]
